FAERS Safety Report 10178444 (Version 1)
Quarter: 2014Q2

REPORT INFORMATION
  Report Type: Spontaneous
  Country: IN (occurrence: None)
  Receive Date: 20140516
  Receipt Date: 20140516
  Transmission Date: 20141212
  Serious: No
  Sender: FDA-Public Use
  Company Number: None

PATIENT
  Age: 26 Year
  Sex: Male
  Weight: 64.41 kg

DRUGS (2)
  1. COMBIFLAM [Suspect]
     Indication: HEADACHE
     Route: 048
  2. CROCIN [Concomitant]

REACTIONS (3)
  - Dizziness [None]
  - Dyspnoea [None]
  - Feeling abnormal [None]
